FAERS Safety Report 4621923-4 (Version None)
Quarter: 2005Q1

REPORT INFORMATION
  Report Type: 
  Country: None (occurrence: None)
  Receive Date: 20050329
  Receipt Date: 20050321
  Transmission Date: 20050727
  Serious: Yes (Hospitalization)
  Sender: FDA-Public Use
  Company Number: PHEH2005US03501

PATIENT
  Age: 59 Year
  Sex: Female

DRUGS (4)
  1. DIOVAN [Suspect]
     Indication: HYPERTENSION
     Dosage: 40 MG, QD
     Dates: start: 20050305, end: 20050306
  2. DILACOR XR [Concomitant]
  3. ZETIA [Concomitant]
     Route: 048
  4. GLUCOTROL [Concomitant]
     Dosage: UNK, BID

REACTIONS (8)
  - ASTHENIA [None]
  - BLOOD CREATINE PHOSPHOKINASE INCREASED [None]
  - CATHETERISATION CARDIAC [None]
  - CHEST PAIN [None]
  - CORONARY ARTERY SURGERY [None]
  - FATIGUE [None]
  - MYOCARDIAL INFARCTION [None]
  - TROPONIN INCREASED [None]
